FAERS Safety Report 18607048 (Version 3)
Quarter: 2021Q1

REPORT INFORMATION
  Report Type: Report from Study
  Country: US (occurrence: US)
  Receive Date: 20201211
  Receipt Date: 20210305
  Transmission Date: 20210419
  Serious: Yes (Other)
  Sender: FDA-Public Use
  Company Number: NVSC2020US330150

PATIENT
  Age: 1 Year
  Sex: Male
  Weight: 7.8 kg

DRUGS (4)
  1. ZOLGENSMA [Suspect]
     Active Substance: ONASEMNOGENE ABEPARVOVEC-XIOI
     Indication: SPINAL MUSCULAR ATROPHY
     Dosage: UNK UNK, ONCE/SINGLE
     Route: 042
     Dates: start: 20201203, end: 20201203
  2. FAMOTIDINE. [Concomitant]
     Active Substance: FAMOTIDINE
     Indication: REFLUX GASTRITIS
     Dosage: UNK, BID
     Route: 048
     Dates: start: 20201211
  3. PREDNISOLONE. [Concomitant]
     Active Substance: PREDNISOLONE
     Indication: PROPHYLAXIS
     Dosage: UNK, QD
     Route: 048
     Dates: start: 20201206
  4. FERROUS SULFATE. [Concomitant]
     Active Substance: FERROUS SULFATE
     Indication: ANAEMIA
     Dosage: UNK, QD
     Route: 048
     Dates: start: 20201224

REACTIONS (4)
  - Pyrexia [Recovered/Resolved]
  - Fatigue [Recovered/Resolved]
  - Vomiting [Recovered/Resolved]
  - Liver function test increased [Recovering/Resolving]

NARRATIVE: CASE EVENT DATE: 20201204
